FAERS Safety Report 4954134-3 (Version None)
Quarter: 2006Q1

REPORT INFORMATION
  Report Type: 
  Country: None (occurrence: None)
  Receive Date: 20060327
  Receipt Date: 20060217
  Transmission Date: 20060701
  Serious: Yes (Life-Threatening)
  Sender: FDA-Public Use
  Company Number: 2006AP00887

PATIENT
  Age: 27774 Day
  Sex: Male
  Weight: 68 kg

DRUGS (10)
  1. IRESSA [Suspect]
     Indication: LUNG ADENOCARCINOMA
     Route: 048
     Dates: start: 20051201, end: 20060214
  2. IRESSA [Suspect]
     Indication: NON-SMALL CELL LUNG CANCER
     Route: 048
     Dates: start: 20051201, end: 20060214
  3. LUVOX [Concomitant]
     Indication: DEPRESSION
     Route: 048
     Dates: start: 20060105, end: 20060215
  4. GASTER [Concomitant]
     Indication: GASTRITIS
     Route: 048
     Dates: start: 20040401
  5. AMLODIPINE BESYLATE [Concomitant]
     Indication: HYPERTENSION
     Route: 048
     Dates: start: 20040401, end: 20060228
  6. DOGMATYL [Concomitant]
     Indication: DEPRESSION
     Route: 048
     Dates: start: 20051220, end: 20060215
  7. DUROTEP [Concomitant]
     Indication: CANCER PAIN
     Route: 048
     Dates: end: 20051220
  8. DORAL [Concomitant]
     Indication: INSOMNIA
     Route: 048
     Dates: start: 20060105, end: 20060215
  9. UFT [Concomitant]
     Dates: start: 20040501, end: 20051201
  10. RADIOTHERAPY [Concomitant]
     Dosage: 48 GY TO SPINE AND LUMBAR SPINE
     Dates: start: 20051201, end: 20060111

REACTIONS (2)
  - CYSTITIS HAEMORRHAGIC [None]
  - INTERSTITIAL LUNG DISEASE [None]
